FAERS Safety Report 8397186-3 (Version None)
Quarter: 2012Q2

REPORT INFORMATION
  Report Type: 
  Country: None (occurrence: None)
  Receive Date: 20120530
  Receipt Date: 20120526
  Transmission Date: 20120825
  Serious: Yes (Death)
  Sender: FDA-Public Use
  Company Number: CA-PFIZER INC-2012127982

PATIENT
  Age: 62 Year
  Sex: Male
  Weight: 87.7 kg

DRUGS (13)
  1. BLINDED THERAPY [Suspect]
     Dosage: 5 MG, 1X/DAY
     Dates: start: 20120427, end: 20120503
  2. BLINDED THERAPY [Suspect]
     Dosage: 7 MG, 1X/DAY
     Dates: start: 20120504, end: 20120508
  3. VENLAFAXINE HCL [Suspect]
     Dosage: 300 MG, 1X/DAY
     Dates: start: 20120316
  4. VENLAFAXINE HCL [Suspect]
     Dosage: 112.5 MG, 1X/DAY
     Dates: start: 20120201, end: 20120203
  5. VENLAFAXINE HCL [Suspect]
     Dosage: 187.5 MG, 1X/DAY
     Dates: start: 20120307, end: 20120309
  6. VENLAFAXINE HCL [Suspect]
     Dosage: 225 MG, 1X/DAY
     Dates: start: 20120310, end: 20120312
  7. BLINDED THERAPY [Suspect]
     Dosage: 2 MG, 1X/DAY
     Dates: start: 20120420, end: 20120425
  8. VENLAFAXINE HCL [Suspect]
     Dosage: 75 MG, 1X/DAY
     Dates: start: 20120129, end: 20120131
  9. VENLAFAXINE HCL [Suspect]
     Dosage: 150 MG, 1X/DAY
     Dates: start: 20120204, end: 20120306
  10. ZOPICLONE [Concomitant]
     Indication: INSOMNIA
     Dosage: 15 MG, 1X/DAY AT BEDTIME
     Route: 048
     Dates: start: 20120201
  11. VENLAFAXINE HCL [Suspect]
     Dosage: 262.5 MG, 1X/DAY
     Dates: start: 20120313, end: 20120315
  12. BLINDED THERAPY [Suspect]
     Dosage: 10 MG, 1X/DAY
     Dates: start: 20120509
  13. VENLAFAXINE HCL [Suspect]
     Dosage: 37.5 MG, 1X/DAY
     Dates: start: 20120126, end: 20120128

REACTIONS (1)
  - COMPLETED SUICIDE [None]
